FAERS Safety Report 5662501-8 (Version None)
Quarter: 2008Q1

REPORT INFORMATION
  Report Type: 
  Country: None (occurrence: None)
  Receive Date: 20080313
  Receipt Date: 20080305
  Transmission Date: 20080703
  Serious: Yes (Hospitalization)
  Sender: FDA-Public Use
  Company Number: MX-WYE-H02983208

PATIENT
  Sex: Female

DRUGS (6)
  1. TYGACIL [Suspect]
     Indication: CELLULITIS
     Dosage: UNKNOWN
     Route: 042
  2. HEPARIN-FRACTION [Concomitant]
     Indication: ANTICOAGULANT THERAPY
     Dosage: UNKNOWN
  3. METOCLOPRAMIDE [Concomitant]
     Dosage: UNKNOWN
  4. PENTOXIFYLLINE [Concomitant]
     Dosage: UNKNOWN
  5. KETOROLAC TROMETHAMINE [Concomitant]
     Indication: ANALGESIC THERAPY
     Dosage: UNKNOWN
  6. RANITIDINE [Concomitant]
     Dosage: UNKNOWN

REACTIONS (1)
  - MENTAL DISORDER DUE TO A GENERAL MEDICAL CONDITION [None]
